FAERS Safety Report 4396895-0 (Version None)
Quarter: 2004Q3

REPORT INFORMATION
  Report Type: 
  Country: None (occurrence: None)
  Receive Date: 20040713
  Receipt Date: 20040713
  Transmission Date: 20050211
  Serious: Yes (Other)
  Sender: FDA-Public Use
  Company Number: None

PATIENT
  Age: 58 Year
  Sex: Female
  Weight: 64.4108 kg

DRUGS (3)
  1. ZICAM NASAL SPRAY [Suspect]
     Indication: NASOPHARYNGITIS
     Dosage: DAILY-1 WEEK
     Dates: start: 20031101
  2. ZICAM NASAL SPRAY [Suspect]
     Indication: NASOPHARYNGITIS
     Dosage: DAILY-1 WEEK
     Dates: start: 20040101
  3. SUDAFED S.A. [Concomitant]

REACTIONS (2)
  - AGEUSIA [None]
  - ANOSMIA [None]
